FAERS Safety Report 10616489 (Version 2)
Quarter: 2014Q4

REPORT INFORMATION
  Report Type: Spontaneous
  Country: FR (occurrence: FR)
  Receive Date: 20141201
  Receipt Date: 20141201
  Transmission Date: 20150529
  Serious: Yes (Hospitalization, Other)
  Sender: FDA-Public Use
  Company Number: FR-BRISTOL-MYERS SQUIBB COMPANY-21615125

PATIENT
  Age: 87 Year
  Sex: Female

DRUGS (16)
  1. AMLOR [Concomitant]
     Active Substance: AMLODIPINE BESYLATE
  2. SERESTA [Concomitant]
     Active Substance: OXAZEPAM
  3. ACLASTA [Concomitant]
     Active Substance: ZOLEDRONIC ACID
  4. SPECIAFOLDINE [Concomitant]
     Active Substance: FOLIC ACID
  5. DAFALGAN [Concomitant]
     Active Substance: ACETAMINOPHEN
  6. CORTANCYL [Concomitant]
     Active Substance: PREDNISONE
  7. TARDYFERON [Concomitant]
     Active Substance: FERROUS SULFATE\FOLIC ACID
  8. TAREG [Concomitant]
     Active Substance: VALSARTAN
  9. METHOTREXATE [Concomitant]
     Active Substance: METHOTREXATE
  10. LYRICA [Concomitant]
     Active Substance: PREGABALIN
  11. TAHOR [Concomitant]
     Active Substance: ATORVASTATIN CALCIUM
  12. COUMADINE [Suspect]
     Active Substance: WARFARIN SODIUM
     Indication: ATRIAL FIBRILLATION
     Dosage: 2MG TABS;1 DF= 1 DOSE UNITS NOS
     Route: 048
  13. INEXIUM [Concomitant]
     Active Substance: ESOMEPRAZOLE
  14. HEMIGOXINE NATIVELLE [Concomitant]
     Active Substance: DIGOXIN
  15. OMACOR [Concomitant]
     Active Substance: OMEGA-3-ACID ETHYL ESTERS
  16. UVEDOSE [Concomitant]
     Active Substance: CHOLECALCIFEROL

REACTIONS (5)
  - International normalised ratio increased [Recovered/Resolved]
  - Pneumonia [Unknown]
  - Haemorrhagic anaemia [Recovered/Resolved]
  - Fall [Unknown]
  - Abdominal wall haematoma [Not Recovered/Not Resolved]

NARRATIVE: CASE EVENT DATE: 201410
